FAERS Safety Report 15654760 (Version 1)
Quarter: 2018Q4

REPORT INFORMATION
  Report Type: Report from Study
  Country: DE (occurrence: DE)
  Receive Date: 20181126
  Receipt Date: 20181126
  Transmission Date: 20190205
  Serious: Yes (Hospitalization)
  Sender: FDA-Public Use
  Company Number: DE-ROCHE-2219473

PATIENT
  Age: 46 Year
  Sex: Male
  Weight: 85 kg

DRUGS (7)
  1. BIOCLAVID [Concomitant]
     Active Substance: AMOXICILLIN\CLAVULANIC ACID
     Route: 048
     Dates: start: 20181116
  2. CIFIN [Concomitant]
     Active Substance: CIPROFLOXACIN HYDROCHLORIDE
     Route: 048
     Dates: start: 20181116
  3. VENETOCLAX. [Suspect]
     Active Substance: VENETOCLAX
     Indication: CHRONIC LYMPHOCYTIC LEUKAEMIA
     Dosage: CYCLE 1: 20 MG (2 TABL. AT 10 MG), D22-28, Q28D; CYCLE 2: 50 MG (1 TABL. AT 50 MG), D1-7; 100 MG (1
     Route: 048
     Dates: start: 20181106
  4. ALLOPURINOL. [Concomitant]
     Active Substance: ALLOPURINOL
     Route: 048
     Dates: start: 20181018
  5. ACYCLOVIR. [Concomitant]
     Active Substance: ACYCLOVIR
     Route: 048
     Dates: start: 20181023
  6. OBINUTUZUMAB. [Suspect]
     Active Substance: OBINUTUZUMAB
     Indication: CHRONIC LYMPHOCYTIC LEUKAEMIA
     Dosage: CYCLE 1: 100 MG, D1; 900 MG, D1(2); 1000 MG, D8+15, Q28D; CYCLES 2-6: 1000 MG, D1, Q28D.?LAST DOSE O
     Route: 042
     Dates: start: 20181016
  7. SULFAMETHOXAZOLE [Concomitant]
     Active Substance: SULFAMETHOXAZOLE
     Route: 048
     Dates: start: 20181116

REACTIONS (1)
  - Non-cardiac chest pain [Recovering/Resolving]

NARRATIVE: CASE EVENT DATE: 20181120
